FAERS Safety Report 5424718-7 (Version None)
Quarter: 2007Q3

REPORT INFORMATION
  Report Type: 
  Country: None (occurrence: None)
  Receive Date: 20070822
  Receipt Date: 20070822
  Transmission Date: 20080115
  Serious: Yes (Hospitalization)
  Sender: FDA-Public Use
  Company Number: None

PATIENT
  Age: 71 Year
  Sex: Male

DRUGS (1)
  1. GLIPIZIDE [Suspect]
     Indication: DIABETES MELLITUS
     Dosage: 5MG EVERY DAY PO
     Route: 048
     Dates: start: 20040323, end: 20070814

REACTIONS (2)
  - HYPOGLYCAEMIA [None]
  - ORAL INTAKE REDUCED [None]
